FAERS Safety Report 8525591-0 (Version None)
Quarter: 2012Q3

REPORT INFORMATION
  Report Type: 
  Country: None (occurrence: None)
  Receive Date: 20120710
  Receipt Date: 20120628
  Transmission Date: 20120928
  Serious: Yes (Other)
  Sender: FDA-Public Use
  Company Number: SPI201200079

PATIENT
  Age: 67 Year
  Sex: Male

DRUGS (2)
  1. KARY UNI (PIRENOXINE) [Concomitant]
  2. RESCULA [Suspect]
     Indication: OCULAR HYPERTENSION
     Dosage: 2 GTT, QD, OPHTHALMIC
     Route: 047
     Dates: start: 20120113, end: 20120312

REACTIONS (2)
  - DYSGEUSIA [None]
  - HYPOAESTHESIA ORAL [None]
